FAERS Safety Report 17665359 (Version 1)
Quarter: 2020Q2

REPORT INFORMATION
  Report Type: Spontaneous
  Country: NG (occurrence: NG)
  Receive Date: 20200414
  Receipt Date: 20200414
  Transmission Date: 20200713
  Serious: Yes (Hospitalization)
  Sender: FDA-Public Use
  Company Number: NG-PFIZER INC-2020147420

PATIENT
  Age: 71 Year
  Sex: Female

DRUGS (5)
  1. VASOPRIN [Concomitant]
     Indication: HYPERTENSION
     Dosage: 75 MG, DAILY
  2. EPIRUBICIN HCL [Suspect]
     Active Substance: EPIRUBICIN HYDROCHLORIDE
     Indication: BREAST CANCER
     Dosage: 85 MG, CYCLIC (SIX COURSE, OVER A 4?MONTH PERIOD)
  3. CO-AMILOZIDE [Concomitant]
     Active Substance: AMILORIDE HYDROCHLORIDE\HYDROCHLOROTHIAZIDE
     Indication: HYPERTENSION
     Dosage: 1 DF, DAILY
  4. CYCLOPHOSPHAMIDE. [Suspect]
     Active Substance: CYCLOPHOSPHAMIDE
     Indication: BREAST CANCER
     Dosage: 850 MG, CYCLIC (SIX COURSES, OVER A 4?MONTH PERIOD)
  5. LISINOPRIL. [Concomitant]
     Active Substance: LISINOPRIL
     Indication: HYPERTENSION
     Dosage: 10 MG, DAILY

REACTIONS (11)
  - Cardiac failure [Recovering/Resolving]
  - Left ventricular dysfunction [Recovering/Resolving]
  - Ejection fraction decreased [Recovering/Resolving]
  - Left ventricular dilatation [Recovering/Resolving]
  - Bundle branch block left [Recovering/Resolving]
  - Ventricular extrasystoles [Recovering/Resolving]
  - Cardiomegaly [Recovering/Resolving]
  - Aortic elongation [Recovering/Resolving]
  - Left atrial enlargement [Recovering/Resolving]
  - Ventricular hypertrophy [Recovering/Resolving]
  - Pericardial effusion [Recovering/Resolving]

NARRATIVE: CASE EVENT DATE: 20130130
